FAERS Safety Report 9028651 (Version 1)
Quarter: 2013Q1

REPORT INFORMATION
  Report Type: Spontaneous
  Country: US (occurrence: US)
  Receive Date: 20130124
  Receipt Date: 20130124
  Transmission Date: 20140127
  Serious: No
  Sender: FDA-Public Use
  Company Number: US-BAUSCH-BL-2012-000012

PATIENT
  Age: 70 Year
  Sex: Female

DRUGS (1)
  1. ALAWAY [Suspect]
     Indication: EYE ALLERGY
     Dosage: 1 DROP TO BOTH EYES DAILY IN THE MORNING
     Dates: start: 20120625

REACTIONS (1)
  - Instillation site pain [Recovered/Resolved]
